FAERS Safety Report 21163479 (Version 6)
Quarter: 2023Q1

REPORT INFORMATION
  Report Type: Report from Study
  Country: FR (occurrence: FR)
  Receive Date: 20220802
  Receipt Date: 20230110
  Transmission Date: 20230417
  Serious: Yes (Death, Life-Threatening, Hospitalization)
  Sender: FDA-Public Use
  Company Number: FR-GILEAD-2022-0590198

PATIENT
  Sex: Male
  Weight: 90 kg

DRUGS (5)
  1. SACITUZUMAB GOVITECAN [Suspect]
     Active Substance: SACITUZUMAB GOVITECAN
     Indication: Transitional cell carcinoma
     Dosage: 10 MG/KG D1 AND D8 OF A 21 DAY CYCLE
     Route: 042
     Dates: start: 20220706, end: 20220713
  2. CANDESARTAN [Concomitant]
     Active Substance: CANDESARTAN
     Indication: Hypertension
  3. QUESTRAN [Concomitant]
     Active Substance: CHOLESTYRAMINE
  4. KARDEGIC [Concomitant]
     Active Substance: ASPIRIN DL-LYSINE
     Dosage: UNK
     Dates: start: 20220617
  5. DOCETAXEL [Concomitant]
     Active Substance: DOCETAXEL

REACTIONS (3)
  - Septic shock [Fatal]
  - Febrile neutropenia [Not Recovered/Not Resolved]
  - Intestinal obstruction [Not Recovered/Not Resolved]

NARRATIVE: CASE EVENT DATE: 20220716
